FAERS Safety Report 15810325 (Version 1)
Quarter: 2019Q1

REPORT INFORMATION
  Report Type: Spontaneous
  Country: US (occurrence: US)
  Receive Date: 20190111
  Receipt Date: 20190111
  Transmission Date: 20190417
  Serious: No
  Sender: FDA-Public Use
  Company Number: US-ROCHE-2199761

PATIENT
  Age: 70 Year
  Sex: Female
  Weight: 74.91 kg

DRUGS (12)
  1. GLIMEPIRIDE. [Concomitant]
     Active Substance: GLIMEPIRIDE
     Indication: BLOOD GLUCOSE INCREASED
     Dosage: YES
     Route: 065
  2. BABY ASPIRIN [Concomitant]
     Active Substance: ASPIRIN
     Indication: CEREBROVASCULAR ACCIDENT PROPHYLAXIS
     Dosage: YES
     Route: 065
  3. PRILOSEC [Concomitant]
     Active Substance: OMEPRAZOLE MAGNESIUM
     Dosage: YES
     Route: 065
  4. TYLENOL [Concomitant]
     Active Substance: ACETAMINOPHEN
     Indication: HEADACHE
     Dosage: 2 PILLS ;ONGOING: UNKNOWN
     Route: 065
  5. FOLIC ACID. [Concomitant]
     Active Substance: FOLIC ACID
     Indication: STOMATITIS
     Dosage: YES
     Route: 065
  6. LUTEIN [Concomitant]
     Active Substance: LUTEIN
     Dosage: YES
     Route: 065
  7. RITUXAN [Suspect]
     Active Substance: RITUXIMAB
     Indication: RHEUMATOID ARTHRITIS
     Dosage: YES
     Route: 065
     Dates: start: 201711
  8. ADVIL [Concomitant]
     Active Substance: IBUPROFEN
     Indication: HEADACHE
     Dosage: 2 PILLS ;ONGOING: UNKNOWN
     Route: 065
     Dates: start: 20181003
  9. NEBULIZER (UNK INGREDIENTS) [Concomitant]
     Indication: ASTHMA
     Dosage: YES
     Route: 065
  10. ZANTAC [Concomitant]
     Active Substance: RANITIDINE HYDROCHLORIDE
     Indication: GASTROOESOPHAGEAL REFLUX DISEASE
     Dosage: YES
     Route: 065
  11. CLARITIN [Concomitant]
     Active Substance: LORATADINE
     Indication: HYPERSENSITIVITY
     Dosage: YES
     Route: 065
  12. SOLU-MEDROL [Suspect]
     Active Substance: METHYLPREDNISOLONE SODIUM SUCCINATE
     Indication: PRODUCT USED FOR UNKNOWN INDICATION
     Route: 065

REACTIONS (13)
  - Abdominal discomfort [Recovered/Resolved]
  - Headache [Recovered/Resolved]
  - Abdominal pain [Recovered/Resolved]
  - Fatigue [Recovered/Resolved]
  - Contusion [Not Recovered/Not Resolved]
  - Weight decreased [Unknown]
  - Blood glucose increased [Recovered/Resolved]
  - Blister [Not Recovered/Not Resolved]
  - Arthralgia [Not Recovered/Not Resolved]
  - Bleeding time prolonged [Recovered/Resolved]
  - Trigger finger [Not Recovered/Not Resolved]
  - Stomatitis [Not Recovered/Not Resolved]
  - Stress [Unknown]

NARRATIVE: CASE EVENT DATE: 201711
